FAERS Safety Report 6201190-0 (Version None)
Quarter: 2009Q2

REPORT INFORMATION
  Report Type: 
  Country: None (occurrence: None)
  Receive Date: 20090526
  Receipt Date: 20090519
  Transmission Date: 20091009
  Serious: Yes (Hospitalization)
  Sender: FDA-Public Use
  Company Number: US-JNJFOC-20090406755

PATIENT
  Sex: Female
  Weight: 74.84 kg

DRUGS (6)
  1. LEVAQUIN [Suspect]
     Indication: PNEUMONIA
     Route: 065
  2. LEVAQUIN [Suspect]
     Indication: SINUSITIS
     Route: 065
  3. CEPHALEXIN [Concomitant]
     Indication: SINUSITIS
     Route: 065
  4. CIPRO [Concomitant]
     Indication: BRONCHITIS
     Route: 065
  5. ZITHROMAX [Concomitant]
     Indication: RESPIRATORY TRACT INFECTION
     Route: 065
  6. AMOXICILLIN [Concomitant]
     Indication: RESPIRATORY TRACT INFECTION
     Route: 065

REACTIONS (3)
  - EXOSTOSIS [None]
  - TENDON RUPTURE [None]
  - TENDONITIS [None]
